FAERS Safety Report 12424312 (Version 3)
Quarter: 2018Q2

REPORT INFORMATION
  Report Type: Spontaneous
  Country: US (occurrence: US)
  Receive Date: 20160601
  Receipt Date: 20180531
  Transmission Date: 20180711
  Serious: No
  Sender: FDA-Public Use
  Company Number: US-NOVEN PHARMACEUTICALS, INC.-US2015001266

PATIENT

DRUGS (16)
  1. DAYTRANA [Suspect]
     Active Substance: METHYLPHENIDATE
     Dosage: 20 MG, USING MULTIPLE PATCHES TO MAKE A TOTAL DOSE OF 40 MG
     Route: 062
  2. ZOLOFT [Concomitant]
     Active Substance: SERTRALINE HYDROCHLORIDE
  3. DAYTRANA [Suspect]
     Active Substance: METHYLPHENIDATE
     Indication: ATTENTION DEFICIT/HYPERACTIVITY DISORDER
     Dosage: 30 MG, UNK
     Route: 062
  4. DAYTRANA [Suspect]
     Active Substance: METHYLPHENIDATE
     Dosage: CUTTING 30MG PATCH INTO ONE THIRD AND APPLYING IT WITH ANOTHER 30MG PATCH, UNK
     Route: 062
     Dates: start: 201605
  5. DAYTRANA [Suspect]
     Active Substance: METHYLPHENIDATE
     Dosage: 20 MG, UNKNOWN
     Route: 062
  6. AMANTADINE. [Concomitant]
     Active Substance: AMANTADINE HYDROCHLORIDE
  7. CITALOPRAM [Concomitant]
     Active Substance: CITALOPRAM HYDROBROMIDE
  8. DAYTRANA [Suspect]
     Active Substance: METHYLPHENIDATE
     Dosage: 10 MG + 30 MG PATCHES IN THE MORNING AND 20 MG PATCH IN THE AFTERNOON
     Route: 062
  9. METHYLPHENIDATE. [Concomitant]
     Active Substance: METHYLPHENIDATE
  10. DAYTRANA [Suspect]
     Active Substance: METHYLPHENIDATE
     Dosage: 10 MG, USING MULTIPLE PATCHES TO MAKE A TOTAL DOSE OF 40 MG
     Route: 062
  11. CIMETIDINE [Concomitant]
     Active Substance: CIMETIDINE
  12. DAYTRANA [Suspect]
     Active Substance: METHYLPHENIDATE
     Dosage: 40 MG (APPLIED EITHER TWO, 20MG PATCHES OR ANY DOSAGE TO MAKE 40MG TWICE IN A DAY), BID
     Route: 062
  13. DAYTRANA [Suspect]
     Active Substance: METHYLPHENIDATE
     Dosage: 40 MG (USING TWO, 20MG PATCHES TOGETHER), UNK
     Route: 062
     Dates: end: 201605
  14. DAYTRANA [Suspect]
     Active Substance: METHYLPHENIDATE
     Dosage: 30 MG, USING MULTIPLE PATCHES TO MAKE A TOTAL DOSE OF 40 MG
     Route: 062
  15. VAYARIN [Concomitant]
     Active Substance: DOCONEXENT\ICOSAPENT\PHOSPHATIDYL SERINE
  16. DEXTROAMPHETAMINE. [Concomitant]
     Active Substance: DEXTROAMPHETAMINE

REACTIONS (10)
  - Product adhesion issue [Unknown]
  - Off label use [Recovered/Resolved]
  - Wrong technique in product usage process [Recovered/Resolved]
  - Prescribed overdose [Recovered/Resolved]
  - Application site erythema [Recovered/Resolved]
  - Product quality issue [Unknown]
  - Drug effect decreased [Unknown]
  - Drug ineffective [Recovered/Resolved]
  - Abnormal behaviour [Recovered/Resolved]
  - Product administered at inappropriate site [Not Recovered/Not Resolved]

NARRATIVE: CASE EVENT DATE: 201802
